FAERS Safety Report 25241371 (Version 3)
Quarter: 2025Q2

REPORT INFORMATION
  Report Type: Spontaneous
  Country: US (occurrence: US)
  Receive Date: 20250425
  Receipt Date: 20250617
  Transmission Date: 20250717
  Serious: No
  Sender: BIOMARIN
  Company Number: US-BIOMARINAP-US-2025-165428

PATIENT

DRUGS (3)
  1. VIMIZIM [Suspect]
     Active Substance: ELOSULFASE ALFA
     Indication: Mucopolysaccharidosis IV
     Dosage: 50 MILLIGRAM, QW
     Route: 042
     Dates: start: 201801
  2. CETIRIZINE HCL [Concomitant]
     Active Substance: CETIRIZINE HYDROCHLORIDE
     Indication: Product used for unknown indication
  3. DIPHENHYDRAMINE [Concomitant]
     Active Substance: DIPHENHYDRAMINE
     Indication: Product used for unknown indication

REACTIONS (1)
  - Drug ineffective [Unknown]
